FAERS Safety Report 14921652 (Version 2)
Quarter: 2018Q2

REPORT INFORMATION
  Report Type: Report from Study
  Country: None (occurrence: US)
  Receive Date: 20180522
  Receipt Date: 20180618
  Transmission Date: 20180711
  Serious: Yes (Death, Hospitalization, Other)
  Sender: FDA-Public Use
  Company Number: US-ABBVIE-18K-163-2362684-00

PATIENT
  Age: 73 Year
  Sex: Male
  Weight: 105.33 kg

DRUGS (1)
  1. HUMIRA [Suspect]
     Active Substance: ADALIMUMAB
     Indication: COLITIS ULCERATIVE
     Route: 058
     Dates: start: 20180115, end: 20180423

REACTIONS (4)
  - Aneurysm [Not Recovered/Not Resolved]
  - Colon cancer [Not Recovered/Not Resolved]
  - Cerebrovascular accident [Fatal]
  - Vein disorder [Not Recovered/Not Resolved]

NARRATIVE: CASE EVENT DATE: 2018
